FAERS Safety Report 14939492 (Version 2)
Quarter: 2018Q2

REPORT INFORMATION
  Report Type: Spontaneous
  Country: US (occurrence: US)
  Receive Date: 20180525
  Receipt Date: 20180628
  Transmission Date: 20180711
  Serious: No
  Sender: FDA-Public Use
  Company Number: US-PFIZER INC-2018209667

PATIENT
  Age: 52 Year
  Sex: Male

DRUGS (3)
  1. DAPTOMYCIN. [Suspect]
     Active Substance: DAPTOMYCIN
     Indication: OSTEOMYELITIS
     Dosage: 700 MG, 1X/DAY (10MG/KG)
     Route: 042
     Dates: start: 20180505, end: 20180506
  2. ERTAPENEM. [Concomitant]
     Active Substance: ERTAPENEM SODIUM
     Indication: OSTEOMYELITIS
     Dosage: 1000 MG, 1X/DAY
     Dates: start: 20180505, end: 20180507
  3. DAPTOMYCIN. [Suspect]
     Active Substance: DAPTOMYCIN
     Indication: BACTERIAL DISEASE CARRIER

REACTIONS (3)
  - Pyrexia [Unknown]
  - Tremor [Recovered/Resolved]
  - Chills [Recovered/Resolved]

NARRATIVE: CASE EVENT DATE: 20180506
